FAERS Safety Report 7422506-3 (Version None)
Quarter: 2011Q2

REPORT INFORMATION
  Report Type: 
  Country: None (occurrence: None)
  Receive Date: 20110419
  Receipt Date: 20091021
  Transmission Date: 20111010
  Serious: No
  Sender: FDA-Public Use
  Company Number: 2009BI034188

PATIENT
  Sex: Female

DRUGS (4)
  1. PARAFON FORTE [Concomitant]
     Indication: MUSCULOSKELETAL STIFFNESS
  2. AVONEX [Concomitant]
     Indication: MULTIPLE SCLEROSIS
     Route: 030
  3. PARAFON FORTE [Concomitant]
     Indication: MYALGIA
  4. TYSABRI [Suspect]
     Indication: MULTIPLE SCLEROSIS
     Route: 042
     Dates: start: 20090813, end: 20110120

REACTIONS (13)
  - DYSPHEMIA [None]
  - INSOMNIA [None]
  - GAIT DISTURBANCE [None]
  - ANXIETY [None]
  - MEMORY IMPAIRMENT [None]
  - TREMOR [None]
  - INFUSION SITE PAIN [None]
  - WEIGHT DECREASED [None]
  - STRESS [None]
  - FEELING COLD [None]
  - FALL [None]
  - PAIN IN EXTREMITY [None]
  - OCULAR HYPERAEMIA [None]
